FAERS Safety Report 9373234 (Version 1)
Quarter: 2013Q2

REPORT INFORMATION
  Report Type: Spontaneous
  Country: JP (occurrence: JP)
  Receive Date: 20130627
  Receipt Date: 20130627
  Transmission Date: 20140414
  Serious: Yes (Hospitalization)
  Sender: FDA-Public Use
  Company Number: JP-ELI_LILLY_AND_COMPANY-JP201306006598

PATIENT
  Sex: Male

DRUGS (1)
  1. ZYPREXA [Suspect]
     Dosage: UNK
     Route: 048
     Dates: end: 20130618

REACTIONS (2)
  - Road traffic accident [Recovered/Resolved]
  - Convulsion [Unknown]
